FAERS Safety Report 13666281 (Version 1)
Quarter: 2017Q2

REPORT INFORMATION
  Report Type: Spontaneous
  Country: US (occurrence: US)
  Receive Date: 20170619
  Receipt Date: 20170619
  Transmission Date: 20170830
  Serious: No
  Sender: FDA-Public Use
  Company Number: US-ROCHE-1332413

PATIENT
  Sex: Male

DRUGS (13)
  1. XELODA [Suspect]
     Active Substance: CAPECITABINE
     Indication: LUNG NEOPLASM MALIGNANT
     Dosage: 14 DAYS ON AND 7 DAYS OFF
     Route: 048
  2. GEMZAR [Concomitant]
     Active Substance: GEMCITABINE HYDROCHLORIDE
  3. SOTALOL. [Concomitant]
     Active Substance: SOTALOL
  4. COUMADIN [Concomitant]
     Active Substance: WARFARIN SODIUM
  5. PROCHLORPERAZINE. [Concomitant]
     Active Substance: PROCHLORPERAZINE
  6. LASIX [Concomitant]
     Active Substance: FUROSEMIDE
  7. LIPITOR [Concomitant]
     Active Substance: ATORVASTATIN CALCIUM
  8. MS CONTIN [Concomitant]
     Active Substance: MORPHINE SULFATE
  9. ASPIRIN. [Concomitant]
     Active Substance: ASPIRIN
  10. XELODA [Suspect]
     Active Substance: CAPECITABINE
     Route: 048
     Dates: start: 20131128
  11. LISINOPRIL. [Concomitant]
     Active Substance: LISINOPRIL
  12. ONDANSETRON [Concomitant]
     Active Substance: ONDANSETRON
  13. HYDROMORPHONE [Concomitant]
     Active Substance: HYDROMORPHONE

REACTIONS (4)
  - Fatigue [Unknown]
  - Ill-defined disorder [Unknown]
  - Alopecia [Unknown]
  - Pain of skin [Unknown]
